FAERS Safety Report 12376029 (Version 1)
Quarter: 2016Q2

REPORT INFORMATION
  Report Type: Spontaneous
  Country: DE (occurrence: DE)
  Receive Date: 20160517
  Receipt Date: 20160517
  Transmission Date: 20160815
  Serious: Yes (Other)
  Sender: FDA-Public Use
  Company Number: DE-GUERBET LLC-1052318

PATIENT
  Age: 48 Year
  Sex: Male
  Weight: 105 kg

DRUGS (2)
  1. BETAFERON [Concomitant]
     Active Substance: INTERFERON BETA-1B
  2. DOTAREM [Suspect]
     Active Substance: GADOTERATE MEGLUMINE
     Indication: NUCLEAR MAGNETIC RESONANCE IMAGING BRAIN
     Route: 042
     Dates: start: 20160509, end: 20160509

REACTIONS (4)
  - Chills [Recovered/Resolved]
  - Malaise [Recovered/Resolved]
  - Back pain [Recovered/Resolved]
  - Erythema [Recovered/Resolved]

NARRATIVE: CASE EVENT DATE: 20160509
